FAERS Safety Report 9461175 (Version 1)
Quarter: 2013Q3

REPORT INFORMATION
  Report Type: Spontaneous
  Country: US (occurrence: None)
  Receive Date: 20130814
  Receipt Date: 20130814
  Transmission Date: 20140515
  Serious: No
  Sender: FDA-Public Use
  Company Number: None

PATIENT
  Age: 62 Year
  Sex: Female
  Weight: 63.5 kg

DRUGS (3)
  1. ACIPHEX [Suspect]
     Indication: DYSPEPSIA
     Dosage: 1 PER DAY MOUTH?ABOUT 7/3-7/10 OR SO
     Route: 048
  2. ACIPHEX [Suspect]
     Indication: GASTROOESOPHAGEAL REFLUX DISEASE
     Dosage: 1 PER DAY MOUTH?ABOUT 7/3-7/10 OR SO
     Route: 048
  3. ACIPHEX [Suspect]
     Indication: FLATULENCE
     Dosage: 1 PER DAY MOUTH?ABOUT 7/3-7/10 OR SO
     Route: 048

REACTIONS (4)
  - Withdrawal syndrome [None]
  - Drug ineffective [None]
  - Chest pain [None]
  - Product quality issue [None]
